FAERS Safety Report 8997067 (Version 1)
Quarter: 2013Q1

REPORT INFORMATION
  Report Type: Spontaneous
  Country: FR (occurrence: FR)
  Receive Date: 20130104
  Receipt Date: 20130104
  Transmission Date: 20140127
  Serious: Yes (Hospitalization)
  Sender: FDA-Public Use
  Company Number: FR-ABBOTT-12P-056-1027948-00

PATIENT
  Age: 10 Year
  Sex: Male

DRUGS (1)
  1. ZECLAR [Suspect]
     Indication: ANGINA PECTORIS
     Route: 048
     Dates: start: 20120628, end: 20120629

REACTIONS (5)
  - Erythema [Recovered/Resolved]
  - Eyelid oedema [Recovered/Resolved]
  - Rash papular [Recovered/Resolved]
  - Blood pressure decreased [Recovered/Resolved]
  - Prurigo [Recovered/Resolved]
